FAERS Safety Report 4737829-6 (Version None)
Quarter: 2005Q3

REPORT INFORMATION
  Report Type: 
  Country: None (occurrence: None)
  Receive Date: 20050803
  Receipt Date: 20050707
  Transmission Date: 20060218
  Serious: Yes (Other)
  Sender: FDA-Public Use
  Company Number: USA050496901

PATIENT
  Age: 23 Year
  Sex: Female
  Weight: 54 kg

DRUGS (3)
  1. STRATTERA [Suspect]
     Indication: ATTENTION DEFICIT/HYPERACTIVITY DISORDER
     Dosage: 40 MG DAY
     Dates: start: 20050317
  2. DEPAKOTE - SLOW RELEASE (VALPROATE SEMISODIUM) [Concomitant]
  3. DEXEDRINE (DEXAMEFETAMINE SULFATE) [Concomitant]

REACTIONS (11)
  - AGITATION [None]
  - BLOOD ALKALINE PHOSPHATASE DECREASED [None]
  - BLOOD CREATININE DECREASED [None]
  - CONVULSION [None]
  - DEPRESSED LEVEL OF CONSCIOUSNESS [None]
  - DIZZINESS [None]
  - DYSKINESIA [None]
  - FATIGUE [None]
  - IMPAIRED DRIVING ABILITY [None]
  - PETIT MAL EPILEPSY [None]
  - SOMNOLENCE [None]
